FAERS Safety Report 24534650 (Version 1)
Quarter: 2024Q4

REPORT INFORMATION
  Report Type: Spontaneous
  Country: HU (occurrence: HU)
  Receive Date: 20241022
  Receipt Date: 20241022
  Transmission Date: 20250115
  Serious: Yes (Other)
  Sender: NOVARTIS
  Company Number: HU-002147023-NVSC2024HU204384

PATIENT
  Age: 60 Year
  Sex: Female

DRUGS (5)
  1. RIBOCICLIB [Suspect]
     Active Substance: RIBOCICLIB
     Indication: Hormone receptor positive HER2 negative breast cancer
     Dosage: 200 MG (1X3 TABLETS OF 200 MG DAILY FOR 21 DAYS, FOLLOWED BY 7-DAYS OF BREAK)
     Route: 065
     Dates: start: 20230713, end: 2023
  2. RIBOCICLIB [Suspect]
     Active Substance: RIBOCICLIB
     Dosage: 400 MG (DAILY FOR 21 DAYS, FOLLOWED BY 7-DAYS OF BREAK)
     Route: 065
     Dates: start: 2023
  3. LETROZOLE [Suspect]
     Active Substance: LETROZOLE
     Indication: Hormone receptor positive HER2 negative breast cancer
     Dosage: 2.5 MG, QD (1XDAILY)
     Route: 065
     Dates: start: 20230713
  4. Metoprolol retard akrikhin [Concomitant]
     Indication: Hypertension
     Dosage: 25 MG, QD
     Route: 065
  5. ZOLEDRONIC ACID [Concomitant]
     Active Substance: ZOLEDRONIC ACID
     Indication: Product used for unknown indication
     Dosage: UNK (4 MG/5 ML) (EVERY 28 DAYS)
     Route: 042
     Dates: start: 202307

REACTIONS (8)
  - Purulent discharge [Recovering/Resolving]
  - Neutropenia [Recovered/Resolved]
  - Metastases to bone [Recovered/Resolved]
  - Metastases to the mediastinum [Unknown]
  - Back pain [Recovering/Resolving]
  - Hypoaesthesia [Recovering/Resolving]
  - Spinal cord compression [Recovering/Resolving]
  - Malignant neoplasm oligoprogression [Recovering/Resolving]

NARRATIVE: CASE EVENT DATE: 20230701
